FAERS Safety Report 24937537 (Version 4)
Quarter: 2025Q1

REPORT INFORMATION
  Report Type: Report from Study
  Country: DE (occurrence: DE)
  Receive Date: 20250206
  Receipt Date: 20250312
  Transmission Date: 20250409
  Serious: Yes (Death)
  Sender: PFIZER
  Company Number: DE-PFIZER INC-PV202500013766

PATIENT
  Age: 70 Year
  Sex: Female

DRUGS (2)
  1. PALBOCICLIB [Suspect]
     Active Substance: PALBOCICLIB
     Indication: Breast cancer
     Route: 048
     Dates: start: 20211229, end: 20230424
  2. FULVESTRANT [Suspect]
     Active Substance: FULVESTRANT
     Indication: Breast cancer
     Route: 030
     Dates: start: 20211228, end: 20230404

REACTIONS (1)
  - Death [Fatal]

NARRATIVE: CASE EVENT DATE: 20240720
